FAERS Safety Report 5503552-3 (Version None)
Quarter: 2007Q4

REPORT INFORMATION
  Report Type: 
  Country: None (occurrence: None)
  Receive Date: 20071029
  Receipt Date: 20071015
  Transmission Date: 20080405
  Serious: Yes (Death, Life-Threatening)
  Sender: FDA-Public Use
  Company Number: 2001004859-FJ

PATIENT
  Age: 25 Year
  Sex: Female
  Weight: 41 kg

DRUGS (10)
  1. PROGRAF [Suspect]
     Indication: RENAL TRANSPLANT
     Dosage: 9 MG, ORAL; 12 MG, ORAL; 6 MG, UID/QD, ORAL; ORAL
     Route: 048
     Dates: start: 20010731, end: 20010801
  2. PROGRAF [Suspect]
     Indication: RENAL TRANSPLANT
     Dosage: 9 MG, ORAL; 12 MG, ORAL; 6 MG, UID/QD, ORAL; ORAL
     Route: 048
     Dates: start: 20010802, end: 20010802
  3. PROGRAF [Suspect]
     Indication: RENAL TRANSPLANT
     Dosage: 9 MG, ORAL; 12 MG, ORAL; 6 MG, UID/QD, ORAL; ORAL
     Route: 048
     Dates: start: 20010731, end: 20010828
  4. PROGRAF [Suspect]
     Indication: RENAL TRANSPLANT
     Dosage: 9 MG, ORAL; 12 MG, ORAL; 6 MG, UID/QD, ORAL; ORAL
     Route: 048
     Dates: start: 20010806, end: 20010828
  5. PROGRAF [Suspect]
     Indication: RENAL TRANSPLANT
     Dosage: IV NOS
     Route: 042
     Dates: start: 20010802, end: 20010805
  6. PREDNISOLONE [Concomitant]
  7. AZATHIOPRINE PER ORAL NOS [Concomitant]
  8. FAMOTIDINE [Concomitant]
  9. CARVEDILOL (CARVEDILOL) PER ORAL NOS [Concomitant]
  10. LOSARTAN POTASSIUM (LOSARTAN POTASSIUM) PER ORAL NOS [Concomitant]

REACTIONS (11)
  - BLOOD LACTATE DEHYDROGENASE INCREASED [None]
  - COMPLICATIONS OF TRANSPLANTED KIDNEY [None]
  - CYTOMEGALOVIRUS INFECTION [None]
  - DISSEMINATED INTRAVASCULAR COAGULATION [None]
  - FUNGAL INFECTION [None]
  - HISTIOCYTOSIS HAEMATOPHAGIC [None]
  - HYPERBILIRUBINAEMIA [None]
  - LEUKOPENIA [None]
  - PNEUMOCYSTIS JIROVECI PNEUMONIA [None]
  - PNEUMONIA BACTERIAL [None]
  - THROMBOCYTOPENIA [None]
